FAERS Safety Report 7410894-3 (Version None)
Quarter: 2011Q2

REPORT INFORMATION
  Report Type: 
  Country: None (occurrence: None)
  Receive Date: 20110413
  Receipt Date: 20110330
  Transmission Date: 20111010
  Serious: Yes (Hospitalization)
  Sender: FDA-Public Use
  Company Number: GB-RANBAXY-2011R1-43468

PATIENT
  Age: 32 Year
  Sex: Female

DRUGS (4)
  1. ANTACID TAB [Concomitant]
     Indication: PRODUCT USED FOR UNKNOWN INDICATION
     Dosage: UNK,UNK
     Route: 048
  2. FUROSEMIDE [Suspect]
     Indication: HYPERCALCAEMIA
     Dosage: UNK,UNK
     Route: 065
  3. MULTI-VITAMINS [Concomitant]
     Indication: PRENATAL CARE
     Dosage: UNK,UNK
     Route: 065
  4. AMPICILLIN [Concomitant]
     Indication: URINARY TRACT INFECTION
     Dosage: UNK,UNK
     Route: 065

REACTIONS (2)
  - DRUG INEFFECTIVE [None]
  - HYPERCALCAEMIA [None]
